FAERS Safety Report 5245785-X (Version None)
Quarter: 2007Q1

REPORT INFORMATION
  Report Type: 
  Country: None (occurrence: None)
  Receive Date: 20070223
  Receipt Date: 20070212
  Transmission Date: 20070707
  Serious: Yes (Other)
  Sender: FDA-Public Use
  Company Number: IE-PFIZER INC-2007013208

PATIENT
  Sex: Female

DRUGS (9)
  1. CHAMPIX [Suspect]
     Indication: DRUG USE FOR UNKNOWN INDICATION
     Route: 048
  2. THEOPHYLLINE [Concomitant]
  3. DELTACORTRIL [Concomitant]
     Dosage: DAILY DOSE:10MG
  4. SERETIDE [Concomitant]
     Route: 055
  5. COMBIVENT [Concomitant]
     Route: 055
  6. SINGULAIR [Concomitant]
     Route: 048
  7. CETIRIZINE HCL [Concomitant]
  8. LOSEC [Concomitant]
  9. ALL OTHER THERAPEUTIC PRODUCTS [Concomitant]

REACTIONS (19)
  - ABDOMINAL DISTENSION [None]
  - ABDOMINAL PAIN UPPER [None]
  - ABNORMAL DREAMS [None]
  - CONSTIPATION [None]
  - DRY MOUTH [None]
  - DYSPNOEA [None]
  - FATIGUE [None]
  - FEELING ABNORMAL [None]
  - HEADACHE [None]
  - HYPERHIDROSIS [None]
  - HYPOAESTHESIA [None]
  - INCREASED APPETITE [None]
  - INSOMNIA [None]
  - NAUSEA [None]
  - PANIC REACTION [None]
  - PHARYNGOLARYNGEAL PAIN [None]
  - PHOTOSENSITIVITY REACTION [None]
  - STOMACH DISCOMFORT [None]
  - VISUAL DISTURBANCE [None]
